FAERS Safety Report 9703907 (Version 1)
Quarter: 2013Q4

REPORT INFORMATION
  Report Type: Spontaneous
  Country: FR (occurrence: FR)
  Receive Date: 20131122
  Receipt Date: 20131122
  Transmission Date: 20140711
  Serious: Yes (Life-Threatening)
  Sender: FDA-Public Use
  Company Number: FR-BAYER-2013-138173

PATIENT
  Age: 18 Year
  Sex: Male

DRUGS (7)
  1. CIFLOX [Suspect]
     Dosage: 500 MG, TID
     Route: 048
     Dates: start: 20130916, end: 20130927
  2. TAZOCILLINE [Suspect]
     Dosage: 4 G, TID
     Route: 042
     Dates: start: 20130911, end: 20130927
  3. INEXIUM [Suspect]
     Dosage: 20 MG, QD
     Route: 048
     Dates: start: 20130828, end: 20130927
  4. XANAX [Concomitant]
  5. ZOPHREN [Concomitant]
  6. ACUPAN [Concomitant]
  7. VANCOMYCIN [Concomitant]

REACTIONS (3)
  - Chills [Recovered/Resolved]
  - Agranulocytosis [Recovered/Resolved]
  - Pyrexia [Recovered/Resolved]
